FAERS Safety Report 22186863 (Version 4)
Quarter: 2023Q2

REPORT INFORMATION
  Report Type: Spontaneous
  Country: AR (occurrence: AR)
  Receive Date: 20230407
  Receipt Date: 20230524
  Transmission Date: 20230722
  Serious: Yes (Death, Life-Threatening, Hospitalization)
  Sender: FDA-Public Use
  Company Number: AR-PFIZER INC-PV202300063274

PATIENT
  Age: 87 Year
  Sex: Female

DRUGS (2)
  1. IBRANCE [Suspect]
     Active Substance: PALBOCICLIB
     Indication: Breast cancer metastatic
     Dosage: SCHEME 3X1
     Dates: start: 20190128, end: 202303
  2. LETROZOLE [Concomitant]
     Active Substance: LETROZOLE

REACTIONS (12)
  - Death [Fatal]
  - Near death experience [Unknown]
  - Weight decreased [Unknown]
  - Vomiting [Unknown]
  - Neoplasm progression [Not Recovered/Not Resolved]
  - Decreased appetite [Recovering/Resolving]
  - Blood iron abnormal [Not Recovered/Not Resolved]
  - Fatigue [Unknown]
  - Fall [Unknown]
  - Limb injury [Unknown]
  - Peripheral swelling [Unknown]
  - Food aversion [Unknown]

NARRATIVE: CASE EVENT DATE: 20230301
